FAERS Safety Report 6735496-3 (Version None)
Quarter: 2010Q2

REPORT INFORMATION
  Report Type: 
  Country: None (occurrence: None)
  Receive Date: 20100521
  Receipt Date: 20100518
  Transmission Date: 20101027
  Serious: Yes (Life-Threatening)
  Sender: FDA-Public Use
  Company Number: JP-SANOFI-AVENTIS-2010SA028537

PATIENT
  Age: 58 Year
  Sex: Male
  Weight: 54 kg

DRUGS (5)
  1. PLAVIX [Suspect]
     Route: 048
     Dates: start: 20061010, end: 20070118
  2. HERBESSER ^TANABE^ [Concomitant]
     Indication: HYPERTENSION
     Route: 048
     Dates: start: 20061010, end: 20070118
  3. RANITIDINE HYDROCHLORIDE [Concomitant]
     Route: 048
     Dates: start: 20061010, end: 20070118
  4. CYANOCOBALAMIN [Concomitant]
     Route: 048
     Dates: start: 20061010, end: 20070118
  5. ULCERLMIN [Concomitant]
     Route: 048
     Dates: start: 20061010, end: 20070118

REACTIONS (1)
  - RHABDOMYOLYSIS [None]
